FAERS Safety Report 9060843 (Version 1)
Quarter: 2013Q1

REPORT INFORMATION
  Report Type: Spontaneous
  Country: IT (occurrence: IT)
  Receive Date: 20130204
  Receipt Date: 20130204
  Transmission Date: 20140127
  Serious: Yes (Hospitalization)
  Sender: FDA-Public Use
  Company Number: IT-BAYER-2013-010002

PATIENT
  Age: 43 Year
  Sex: Male

DRUGS (4)
  1. ASPIRINA [Suspect]
     Indication: INTENTIONAL SELF-INJURY
     Dosage: 3000 MG, ONCE
     Route: 048
     Dates: start: 20130122, end: 20130122
  2. CARDIOASPIRIN [Suspect]
     Indication: INTENTIONAL SELF-INJURY
     Dosage: 1800 MG, ONCE
     Route: 048
     Dates: start: 20130122, end: 20130122
  3. PARACETAMOL [Suspect]
     Indication: INTENTIONAL SELF-INJURY
     Dosage: 5 G, ONCE
     Route: 048
     Dates: start: 20130122, end: 20130122
  4. AUGMENTIN [Suspect]
     Indication: INTENTIONAL SELF-INJURY
     Dosage: 6 G, ONCE
     Route: 048
     Dates: start: 20130122, end: 20130122

REACTIONS (2)
  - Hypotension [Recovered/Resolved]
  - Drug abuse [Recovered/Resolved]
